FAERS Safety Report 6254283-6 (Version None)
Quarter: 2009Q3

REPORT INFORMATION
  Report Type: 
  Country: None (occurrence: None)
  Receive Date: 20090701
  Receipt Date: 20090701
  Transmission Date: 20100115
  Serious: Yes (Hospitalization)
  Sender: FDA-Public Use
  Company Number: None

PATIENT
  Age: 51 Year
  Sex: Female
  Weight: 65.7716 kg

DRUGS (1)
  1. XYZAL [Suspect]
     Indication: SEASONAL ALLERGY
     Dosage: 1 TABLET DAILY, AT BEDTIME PO
     Route: 048
     Dates: start: 20090605, end: 20090619

REACTIONS (3)
  - CONVULSION [None]
  - DEHYDRATION [None]
  - SYNCOPE [None]
